FAERS Safety Report 8112028 (Version 4)
Quarter: 2013Q3

REPORT INFORMATION
  Report Type: Spontaneous
  Country: US (occurrence: US)
  Receive Date: 20110830
  Receipt Date: 20130926
  Transmission Date: 20140515
  Serious: Yes (Hospitalization, Other)
  Sender: FDA-Public Use
  Company Number: US-BIOGENIDEC-2011BI032075

PATIENT
  Age: 38 Year
  Sex: Female

DRUGS (4)
  1. AVONEX [Suspect]
     Indication: MULTIPLE SCLEROSIS
     Route: 030
     Dates: start: 20051107, end: 20110809
  2. VITAMIN D [Concomitant]
  3. CALCIUM [Concomitant]
  4. VITAMIN B 12 [Concomitant]

REACTIONS (6)
  - Abasia [Not Recovered/Not Resolved]
  - Thrombosis [Recovered/Resolved]
  - Multiple sclerosis relapse [Recovered/Resolved]
  - Muscular weakness [Not Recovered/Not Resolved]
  - Myelopathy [Not Recovered/Not Resolved]
  - Dementia [Not Recovered/Not Resolved]
